FAERS Safety Report 17957206 (Version 1)
Quarter: 2020Q2

REPORT INFORMATION
  Report Type: Spontaneous
  Country: FR (occurrence: FR)
  Receive Date: 20200629
  Receipt Date: 20200629
  Transmission Date: 20200714
  Serious: Yes (Other)
  Sender: FDA-Public Use
  Company Number: FR-PFIZER INC-2020247484

PATIENT
  Age: 21 Year
  Sex: Female

DRUGS (2)
  1. TERCIAN [CYAMEMAZINE TARTRATE] [Suspect]
     Active Substance: CYAMEMAZINE
     Dosage: 300 MG
     Route: 048
     Dates: start: 20200601, end: 20200601
  2. VENLAFAXINE HCL [Suspect]
     Active Substance: VENLAFAXINE HYDROCHLORIDE
     Dosage: 75 MG
     Route: 048
     Dates: start: 20200601, end: 20200601

REACTIONS (2)
  - Toxicity to various agents [Unknown]
  - Somnolence [Recovered/Resolved]

NARRATIVE: CASE EVENT DATE: 20200601
